FAERS Safety Report 8829423 (Version 1)
Quarter: 2012Q4

REPORT INFORMATION
  Report Type: 
  Country: US (occurrence: US)
  Receive Date: 20121008
  Receipt Date: 20121008
  Transmission Date: 20130627
  Serious: No
  Sender: FDA-Public Use
  Company Number: US-TEVA-352382USA

PATIENT
  Sex: Female

DRUGS (2)
  1. QVAR [Suspect]
     Indication: ASTHMA
  2. PROVENTIL [Concomitant]

REACTIONS (2)
  - Pneumonia [Unknown]
  - Dyspnoea [Unknown]
